FAERS Safety Report 4570916-4 (Version None)
Quarter: 2005Q1

REPORT INFORMATION
  Report Type: 
  Country: None (occurrence: None)
  Receive Date: 20050204
  Receipt Date: 20050126
  Transmission Date: 20050727
  Serious: Yes (Hospitalization)
  Sender: FDA-Public Use
  Company Number: JP-MERCK-0501USA04479

PATIENT
  Age: 79 Year
  Sex: Male

DRUGS (4)
  1. PEPCID [Suspect]
     Route: 048
     Dates: start: 20050117, end: 20050126
  2. MAGNESIUM OXIDE [Suspect]
     Route: 065
     Dates: end: 20050127
  3. FERROMIA [Concomitant]
     Route: 065
  4. PEPCID RPD [Suspect]
     Route: 048
     Dates: start: 20050127

REACTIONS (1)
  - NEPHRITIS INTERSTITIAL [None]
